FAERS Safety Report 23598989 (Version 2)
Quarter: 2024Q1

REPORT INFORMATION
  Report Type: Spontaneous
  Country: FR (occurrence: FR)
  Receive Date: 20240306
  Receipt Date: 20240318
  Transmission Date: 20240410
  Serious: Yes (Life-Threatening, Other)
  Sender: FDA-Public Use
  Company Number: None

PATIENT
  Age: 37 Year
  Sex: Female

DRUGS (9)
  1. SPRAVATO [Suspect]
     Active Substance: ESKETAMINE
     Indication: Depression
     Dates: start: 20240123, end: 20240123
  2. SPRAVATO [Suspect]
     Active Substance: ESKETAMINE
     Dates: start: 20240126, end: 20240126
  3. SPRAVATO [Suspect]
     Active Substance: ESKETAMINE
     Dates: start: 20240130, end: 20240130
  4. SPRAVATO [Suspect]
     Active Substance: ESKETAMINE
     Dates: start: 20240202, end: 20240202
  5. SPRAVATO [Suspect]
     Active Substance: ESKETAMINE
     Dates: start: 20240206, end: 20240206
  6. SPRAVATO [Suspect]
     Active Substance: ESKETAMINE
     Dates: start: 20240213, end: 20240213
  7. DIOSMIN\HESPERIDIN [Concomitant]
     Active Substance: DIOSMIN\HESPERIDIN
     Indication: Product used for unknown indication
     Route: 065
  8. ACETAMINOPHEN\BELLADONNA LEAF\CAFFEINE\OPIUM [Concomitant]
     Active Substance: ACETAMINOPHEN\BELLADONNA LEAF\CAFFEINE\OPIUM
     Indication: Product used for unknown indication
     Route: 048
  9. VENLAFAXINE [Concomitant]
     Active Substance: VENLAFAXINE HYDROCHLORIDE
     Indication: Depression
     Route: 048

REACTIONS (3)
  - Haematoma [Not Recovered/Not Resolved]
  - Pain [Not Recovered/Not Resolved]
  - Pruritus [Not Recovered/Not Resolved]

NARRATIVE: CASE EVENT DATE: 20240206
